FAERS Safety Report 8580778 (Version 4)
Quarter: 2013Q2

REPORT INFORMATION
  Report Type: Report from Study
  Country: CA (occurrence: CA)
  Receive Date: 20120525
  Receipt Date: 20130401
  Transmission Date: 20140414
  Serious: Yes (Other)
  Sender: FDA-Public Use
  Company Number: CA-ROCHE-1068862

PATIENT
  Age: 70 Year
  Sex: Female
  Weight: 84.9 kg

DRUGS (18)
  1. RITUXAN [Suspect]
     Indication: RHEUMATOID ARTHRITIS
     Route: 042
     Dates: start: 20100930
  2. TIAZAC [Concomitant]
  3. PREMARIN [Concomitant]
     Dosage: DRUG REPORTED AS PREMIRON
     Route: 065
  4. HYDROCHLOROTHIAZIDE [Concomitant]
  5. SPIRONOLACTONE [Concomitant]
  6. ATACAND [Concomitant]
     Route: 065
  7. ATACAND [Concomitant]
     Route: 065
  8. FOLIC ACID [Concomitant]
  9. NITRO SPRAY [Concomitant]
     Indication: ARTERIOSPASM CORONARY
  10. DICLOFENAC [Concomitant]
     Indication: INFLAMMATION
     Route: 061
  11. EFUDEX [Concomitant]
     Indication: SKIN CANCER
     Route: 061
  12. DIPHENHYDRAMINE HCL [Concomitant]
     Indication: PREMEDICATION
     Route: 048
     Dates: start: 20111212, end: 20111212
  13. DIPHENHYDRAMINE HCL [Concomitant]
     Route: 048
     Dates: start: 20100930
  14. ACETAMINOPHEN [Concomitant]
     Indication: PREMEDICATION
     Route: 048
     Dates: start: 20111212, end: 20111212
  15. ACETAMINOPHEN [Concomitant]
     Route: 048
     Dates: start: 20100930
  16. METHYLPREDNISOLONE [Concomitant]
     Indication: PREMEDICATION
     Route: 042
     Dates: start: 20111212, end: 20111212
  17. PREDNISONE [Concomitant]
     Indication: PREMEDICATION
     Route: 048
     Dates: start: 20100929
  18. METHOTREXATE [Concomitant]
     Route: 065

REACTIONS (5)
  - Basal cell carcinoma [Recovered/Resolved]
  - Drug effect decreased [Unknown]
  - Sjogren^s syndrome [Unknown]
  - Neoplasm [Recovering/Resolving]
  - Hypotension [Recovered/Resolved]
